FAERS Safety Report 7940812-0 (Version None)
Quarter: 2011Q4

REPORT INFORMATION
  Report Type: 
  Country: None (occurrence: None)
  Receive Date: 20111128
  Receipt Date: 20111123
  Transmission Date: 20120403
  Serious: Yes (Other)
  Sender: FDA-Public Use
  Company Number: US-PFIZER INC-2011287157

PATIENT
  Sex: Female
  Weight: 97.506 kg

DRUGS (5)
  1. DOXYCYCLINE [Concomitant]
     Dosage: UNK
  2. NUVIGIL [Concomitant]
     Dosage: UNK
  3. CLARINEX [Concomitant]
     Indication: HYPERSENSITIVITY
     Dosage: UNK
  4. CHANTIX [Suspect]
     Indication: SMOKING CESSATION THERAPY
     Dosage: 0.5 MG, 1X/DAY
     Route: 048
     Dates: start: 20111118, end: 20111101
  5. CHANTIX [Suspect]
     Dosage: 0.5 MG, 2X/DAY
     Route: 048
     Dates: start: 20111101, end: 20111123

REACTIONS (4)
  - SKIN EXFOLIATION [None]
  - PAIN IN EXTREMITY [None]
  - ERYTHEMA [None]
  - OEDEMA PERIPHERAL [None]
